FAERS Safety Report 7126673-0 (Version None)
Quarter: 2010Q4

REPORT INFORMATION
  Report Type: 
  Country: None (occurrence: None)
  Receive Date: 20101129
  Receipt Date: 20101122
  Transmission Date: 20110411
  Serious: Yes (Death, Other)
  Sender: FDA-Public Use
  Company Number: IT-ROCHE-744239

PATIENT

DRUGS (10)
  1. ALL-TRANS-RETINOIC ACID [Suspect]
     Dosage: INDUCTION: UNTIL COMPLETE REMISSION OR FOR MAXIMUM 45 DAYS.
     Route: 048
  2. IDARUBICIN HCL [Suspect]
     Dosage: INDUCTION THERAPY: ON DAYS 2, 4, 6 AND 8.
     Route: 042
  3. IDARUBICIN HCL [Suspect]
     Dosage: CONSOLIDATION COURSE 1: ON DAYS 1, 2, 3 AND 4
     Route: 042
  4. IDARUBICIN HCL [Suspect]
     Dosage: CONSOLIDATION THERAPY: COURSE 3: ON DAY 1
     Route: 042
  5. CYTARABINE [Suspect]
     Dosage: CONSOLIDATION: COURSE 1: DAYS 1-4.
     Route: 065
  6. CYTARABINE [Suspect]
     Dosage: CONSOLIDATION: COURSE 3: DAYS 1-5
     Route: 065
  7. MITOXANTRONE [Suspect]
     Dosage: CONSOLIDATION: COURSE 2: DAYS 1-5
     Route: 065
  8. ETOPOSIDE [Suspect]
     Dosage: CONSOLIDATION: COURSE 2: DAYS 1-5
     Route: 065
  9. THIOGUANINE [Suspect]
     Dosage: CONSOLIDATION: COURSE 3: DAYS 1-5
     Route: 065
  10. PREDNISONE [Concomitant]
     Indication: PROPHYLAXIS
     Dosage: DURING INDUCTION THERAPY

REACTIONS (10)
  - ACUTE PROMYELOCYTIC LEUKAEMIA DIFFERENTIATION SYNDROME [None]
  - BENIGN INTRACRANIAL HYPERTENSION [None]
  - DEATH [None]
  - EMBOLISM ARTERIAL [None]
  - HAEMORRHAGE [None]
  - INFECTION [None]
  - MYOCARDIAL INFARCTION [None]
  - NEUTROPENIA [None]
  - PYREXIA [None]
  - RENAL FAILURE [None]
